FAERS Safety Report 5340112-1 (Version None)
Quarter: 2007Q2

REPORT INFORMATION
  Report Type: 
  Country: None (occurrence: None)
  Receive Date: 20070525
  Receipt Date: 20070525
  Transmission Date: 20071010
  Serious: Yes (Hospitalization)
  Sender: FDA-Public Use
  Company Number: None

PATIENT
  Age: 67 Year
  Sex: Male
  Weight: 104 kg

DRUGS (13)
  1. ATORVASTATIN CALCIUM [Suspect]
     Indication: BLOOD CHOLESTEROL
     Dosage: 40 MG PO DAILY
     Route: 048
  2. LAMOTRIGINE [Suspect]
     Dosage: 150 MG PO DAILY
     Route: 048
  3. METHADONE HCL [Concomitant]
  4. NIASPAN ER [Concomitant]
  5. TAMSULOSIN HCL [Concomitant]
  6. TRAZODONE HCL [Concomitant]
  7. GLYCOLAX [Concomitant]
  8. TRIAMTERENE [Concomitant]
  9. POTASSIUM ACETATE [Concomitant]
  10. TOPIRAMATE [Concomitant]
  11. LANSOPRAZOLE [Concomitant]
  12. NEURONTIN [Concomitant]
  13. VALIUM [Concomitant]

REACTIONS (2)
  - BLOOD CREATINE PHOSPHOKINASE INCREASED [None]
  - CHEST PAIN [None]
